FAERS Safety Report 5833435-0 (Version None)
Quarter: 2008Q3

REPORT INFORMATION
  Report Type: 
  Country: None (occurrence: None)
  Receive Date: 20080731
  Receipt Date: 20080715
  Transmission Date: 20090109
  Serious: Yes (Hospitalization)
  Sender: FDA-Public Use
  Company Number: 2008AL003812

PATIENT
  Age: 75 Year
  Sex: Male
  Weight: 78.4723 kg

DRUGS (1)
  1. DIGOXIN [Suspect]

REACTIONS (1)
  - APPARENT DEATH [None]
